FAERS Safety Report 4756553-7 (Version None)
Quarter: 2005Q3

REPORT INFORMATION
  Report Type: 
  Country: None (occurrence: None)
  Receive Date: 20050830
  Receipt Date: 20050802
  Transmission Date: 20060218
  Serious: Yes (Other)
  Sender: FDA-Public Use
  Company Number: CA-GLAXOSMITHKLINE-A0569604A

PATIENT
  Age: 60 Year
  Sex: Female

DRUGS (1)
  1. GAVISCON HBR REGULAR STRENGTH FRUIT FOAMTABS [Suspect]
     Route: 048
     Dates: start: 20050301

REACTIONS (4)
  - FAILURE OF IMPLANT [None]
  - PHARMACEUTICAL PRODUCT COMPLAINT [None]
  - POOR QUALITY DRUG ADMINISTERED [None]
  - TOOTH FRACTURE [None]
